FAERS Safety Report 8975728 (Version 2)
Quarter: 2013Q1

REPORT INFORMATION
  Report Type: Report from Study
  Country: JP (occurrence: JP)
  Receive Date: 20121219
  Receipt Date: 20130129
  Transmission Date: 20140127
  Serious: Yes (Hospitalization, Other)
  Sender: FDA-Public Use
  Company Number: PHHY2012JP116028

PATIENT
  Age: 76 Year
  Sex: Female
  Weight: 49 kg

DRUGS (4)
  1. EXELON [Suspect]
     Indication: DEMENTIA ALZHEIMER^S TYPE
     Dosage: 4.5 MG/ 24 HRS
     Route: 062
     Dates: start: 20120207, end: 20120307
  2. EXELON [Suspect]
     Dosage: 9 MG/ 24 HRS
     Route: 062
     Dates: start: 20120308, end: 20120405
  3. EXELON [Suspect]
     Dosage: 13.5 MG/ 24 HRS
     Route: 062
     Dates: start: 20120406, end: 20120504
  4. EXELON [Suspect]
     Dosage: 18 MG/ 24 HRS
     Route: 062
     Dates: start: 20120624

REACTIONS (3)
  - Lower limb fracture [Recovered/Resolved]
  - Fall [Recovered/Resolved]
  - Weight decreased [Unknown]
